FAERS Safety Report 20213433 (Version 2)
Quarter: 2024Q4

REPORT INFORMATION
  Report Type: Spontaneous
  Country: DE (occurrence: DE)
  Receive Date: 20211221
  Receipt Date: 20241007
  Transmission Date: 20250115
  Serious: Yes (Other)
  Sender: PFIZER
  Company Number: DE-CELLTRION HEALTHCARE HUNGARY KFT-2021DE016252

PATIENT
  Age: 76 Year
  Sex: Female

DRUGS (1)
  1. RITUXIMAB [Suspect]
     Active Substance: RITUXIMAB
     Dosage: THIRD INFUSION, CONCENTRATE FOR SOLUTION FOR INFUSION

REACTIONS (4)
  - Hypersensitivity [Unknown]
  - Progressive multifocal leukoencephalopathy [Unknown]
  - Erythema [Unknown]
  - Skin swelling [Unknown]
